FAERS Safety Report 20916380 (Version 1)
Quarter: 2022Q2

REPORT INFORMATION
  Report Type: Report from Study
  Country: DE (occurrence: DE)
  Receive Date: 20220604
  Receipt Date: 20220604
  Transmission Date: 20220720
  Serious: Yes (Other)
  Sender: FDA-Public Use
  Company Number: DE-TEVA-2022-DE-2041829

PATIENT
  Age: 53 Year
  Sex: Female

DRUGS (1)
  1. COPAXONE [Suspect]
     Active Substance: GLATIRAMER ACETATE
     Indication: Multiple sclerosis
     Route: 065
     Dates: start: 20220323

REACTIONS (3)
  - Scleroderma [Unknown]
  - Injection site urticaria [Not Recovered/Not Resolved]
  - Subcutaneous drug absorption impaired [Unknown]

NARRATIVE: CASE EVENT DATE: 20220301
